FAERS Safety Report 13782189 (Version 1)
Quarter: 2017Q3

REPORT INFORMATION
  Report Type: Spontaneous
  Country: US (occurrence: US)
  Receive Date: 20170724
  Receipt Date: 20170724
  Transmission Date: 20171127
  Serious: Yes (Hospitalization)
  Sender: FDA-Public Use
  Company Number: None

PATIENT
  Age: 73 Year
  Sex: Female
  Weight: 72.1 kg

DRUGS (1)
  1. REGORAFENIB [Suspect]
     Active Substance: REGORAFENIB
     Dosage: ?          OTHER DOSE:MG;?
     Route: 048

REACTIONS (5)
  - Cholangitis [None]
  - Blood bilirubin increased [None]
  - Pyrexia [None]
  - Immunodeficiency [None]
  - Sepsis [None]

NARRATIVE: CASE EVENT DATE: 20170722
